APPROVED DRUG PRODUCT: HALOPERIDOL
Active Ingredient: HALOPERIDOL LACTATE
Strength: EQ 2MG BASE/ML
Dosage Form/Route: CONCENTRATE;ORAL
Application: A070710 | Product #001
Applicant: MORTON GROVE PHARMACEUTICALS INC
Approved: Mar 7, 1986 | RLD: No | RS: No | Type: DISCN